FAERS Safety Report 8584827-0 (Version None)
Quarter: 2012Q2

REPORT INFORMATION
  Report Type: 
  Country: None (occurrence: None)
  Receive Date: 20120423
  Receipt Date: 20091029
  Transmission Date: 20120825
  Serious: Yes (Other)
  Sender: FDA-Public Use
  Company Number: PHEH2009US14657

PATIENT
  Sex: Female

DRUGS (3)
  1. REVLIMID [Concomitant]
  2. EXJADE [Suspect]
     Indication: BLOOD PRODUCT TRANSFUSION DEPENDENT
     Dosage: 1250 DAILY, ORAL
     Route: 048
     Dates: start: 20090904
  3. EXJADE [Suspect]
     Indication: CHRONIC LYMPHOCYTIC LEUKAEMIA
     Dosage: 1250 DAILY, ORAL
     Route: 048
     Dates: start: 20090904

REACTIONS (1)
  - NEOPLASM MALIGNANT [None]
